FAERS Safety Report 7982084-7 (Version None)
Quarter: 2011Q4

REPORT INFORMATION
  Report Type: 
  Country: None (occurrence: None)
  Receive Date: 20111212
  Receipt Date: 20111130
  Transmission Date: 20120403
  Serious: Yes (Other)
  Sender: FDA-Public Use
  Company Number: 2011SP018650

PATIENT
  Age: 48 Year
  Sex: Male

DRUGS (3)
  1. PROVENTIL-HFA [Suspect]
     Indication: ASTHMA
     Dosage: 120 MCG;QID;INH
     Route: 055
     Dates: end: 20100301
  2. PREDNISONE [Concomitant]
  3. PULMICORT [Concomitant]

REACTIONS (8)
  - OEDEMA PERIPHERAL [None]
  - DRUG INEFFECTIVE [None]
  - VISUAL IMPAIRMENT [None]
  - RASH [None]
  - LIP SWELLING [None]
  - DYSPNOEA [None]
  - SWELLING FACE [None]
  - HEADACHE [None]
